FAERS Safety Report 6057694-7 (Version None)
Quarter: 2009Q1

REPORT INFORMATION
  Report Type: 
  Country: None (occurrence: None)
  Receive Date: 20090129
  Receipt Date: 20090126
  Transmission Date: 20090719
  Serious: Yes (Other)
  Sender: FDA-Public Use
  Company Number: NO-WYE-G03015009

PATIENT
  Sex: Male

DRUGS (8)
  1. EFFEXOR [Suspect]
     Indication: BIPOLAR DISORDER
     Route: 048
     Dates: start: 20080521, end: 20081009
  2. EFFEXOR [Suspect]
     Dates: start: 20081010, end: 20081024
  3. EFFEXOR [Suspect]
     Dates: start: 20081025, end: 20081109
  4. FENAZON-KOFFEIN [Concomitant]
  5. TRAMADOL HCL [Concomitant]
  6. LITHIONIT [Concomitant]
     Dates: start: 20081013
  7. LITHIONIT [Concomitant]
     Dosage: 42 MG IN THE MORNING AND 84 MG IN THE AFTERNOON
     Dates: start: 20080101, end: 20080101
  8. LITHIONIT [Concomitant]
     Dates: start: 20081103

REACTIONS (3)
  - ALTERED VISUAL DEPTH PERCEPTION [None]
  - HALLUCINATION, VISUAL [None]
  - WITHDRAWAL SYNDROME [None]
